FAERS Safety Report 10240599 (Version 1)
Quarter: 2014Q2

REPORT INFORMATION
  Report Type: Spontaneous
  Country: US (occurrence: None)
  Receive Date: 20140613
  Receipt Date: 20140613
  Transmission Date: 20141212
  Serious: Yes (Hospitalization, Disabling)
  Sender: FDA-Public Use
  Company Number: None

PATIENT
  Age: 36 Year
  Sex: Female
  Weight: 102.06 kg

DRUGS (1)
  1. LATUDA [Suspect]
     Indication: SCHIZOAFFECTIVE DISORDER
     Dosage: 1 PILL ONCE DAILY TAKEN BY MOUTH
     Route: 048
     Dates: start: 20130601, end: 20140313

REACTIONS (3)
  - Convulsion [None]
  - Tardive dyskinesia [None]
  - Cerebrovascular accident [None]
